FAERS Safety Report 6161842-8 (Version None)
Quarter: 2009Q2

REPORT INFORMATION
  Report Type: 
  Country: None (occurrence: None)
  Receive Date: 20090421
  Receipt Date: 20081020
  Transmission Date: 20091009
  Serious: No
  Sender: FDA-Public Use
  Company Number: US-SOLVAY-00208004979

PATIENT
  Age: 40 Year
  Sex: Female
  Weight: 118 kg

DRUGS (1)
  1. ANDROGEL [Suspect]
     Indication: ACCIDENTAL EXPOSURE
     Dosage: DAILY DOSE:  UNKNOWN
     Route: 062

REACTIONS (5)
  - ACCIDENTAL EXPOSURE [None]
  - ALOPECIA [None]
  - HIRSUTISM [None]
  - MENSTRUAL DISORDER [None]
  - VISUAL IMPAIRMENT [None]
